FAERS Safety Report 9540846 (Version 2)
Quarter: 2013Q3

REPORT INFORMATION
  Report Type: Report from Study
  Country: AU (occurrence: AU)
  Receive Date: 20130920
  Receipt Date: 20130920
  Transmission Date: 20140515
  Serious: Yes (Other)
  Sender: FDA-Public Use
  Company Number: PHHY2013AU098037

PATIENT
  Sex: Female

DRUGS (3)
  1. ACLASTA [Suspect]
     Dosage: UNK
     Route: 042
     Dates: start: 20100830
  2. ACLASTA [Suspect]
     Dosage: UNK
     Route: 042
     Dates: start: 20110916
  3. ACLASTA [Suspect]
     Dosage: UNK
     Route: 042
     Dates: start: 20120824

REACTIONS (2)
  - Fall [Unknown]
  - Wrist fracture [Unknown]
